FAERS Safety Report 12175402 (Version 1)
Quarter: 2016Q1

REPORT INFORMATION
  Report Type: Spontaneous
  Country: US (occurrence: US)
  Receive Date: 20160314
  Receipt Date: 20160314
  Transmission Date: 20160526
  Serious: No
  Sender: FDA-Public Use
  Company Number: US-BANPHARM-20164562

PATIENT
  Sex: Female

DRUGS (3)
  1. NIMODIPINE CAPSULES 30 MG [Suspect]
     Active Substance: NIMODIPINE
     Route: 048
  2. NIMODIPINE CAPSULES 30 MG [Suspect]
     Active Substance: NIMODIPINE
     Dosage: DF, TID,
     Route: 048
  3. NIMODIPINE CAPSULES 30 MG [Suspect]
     Active Substance: NIMODIPINE
     Route: 048

REACTIONS (1)
  - Dizziness [Recovered/Resolved]
